FAERS Safety Report 18191891 (Version 2)
Quarter: 2021Q3

REPORT INFORMATION
  Report Type: Spontaneous
  Country: US (occurrence: US)
  Receive Date: 20200825
  Receipt Date: 20210921
  Transmission Date: 20211014
  Serious: No
  Sender: FDA-Public Use
  Company Number: US-TEVA-2020-US-1817476

PATIENT
  Age: 76 Year
  Sex: Female

DRUGS (1)
  1. PROAIR HFA [Suspect]
     Active Substance: ALBUTEROL SULFATE
     Route: 065

REACTIONS (6)
  - Illness [Unknown]
  - Oxygen therapy [Unknown]
  - Confusional state [Unknown]
  - Visual impairment [Unknown]
  - Fall [Unknown]
  - Ear discomfort [Unknown]
